FAERS Safety Report 7436692-2 (Version None)
Quarter: 2011Q2

REPORT INFORMATION
  Report Type: 
  Country: None (occurrence: None)
  Receive Date: 20110418
  Receipt Date: 20110405
  Transmission Date: 20111010
  Serious: Yes (Hospitalization)
  Sender: FDA-Public Use
  Company Number: TPA2011A00925

PATIENT
  Age: 85 Year
  Sex: Female

DRUGS (3)
  1. ULORIC [Suspect]
     Indication: HYPERURICAEMIA
     Dosage: 80 MG (80 MG,1 IN 1 D) PER ORAL
     Route: 048
     Dates: start: 20100701, end: 20100901
  2. DISCOTRINE (GLYCERYL TRINITRATE) [Concomitant]
  3. OLMESARTAN MEDOXOMIL [Concomitant]

REACTIONS (2)
  - CARDIAC FAILURE ACUTE [None]
  - HOT FLUSH [None]
